FAERS Safety Report 8771438 (Version 3)
Quarter: 2015Q2

REPORT INFORMATION
  Report Type: Spontaneous
  Country: US (occurrence: US)
  Receive Date: 20120905
  Receipt Date: 20150407
  Transmission Date: 20150821
  Serious: Yes (Disabling)
  Sender: FDA-Public Use
  Company Number: US-009507513-1208USA012610

PATIENT
  Sex: Male
  Weight: 75.28 kg

DRUGS (1)
  1. PROPECIA [Suspect]
     Active Substance: FINASTERIDE
     Indication: ALOPECIA
     Dosage: 1 MG, UNK
     Route: 048
     Dates: start: 1998, end: 20061011

REACTIONS (18)
  - Drug effect decreased [Unknown]
  - Sleep disorder [Unknown]
  - Erectile dysfunction [Unknown]
  - Benign prostatic hyperplasia [Not Recovered/Not Resolved]
  - Nocturia [Unknown]
  - Cognitive disorder [Not Recovered/Not Resolved]
  - Snoring [Unknown]
  - Sinus bradycardia [Unknown]
  - Anxiety [Not Recovered/Not Resolved]
  - Sexual dysfunction [Not Recovered/Not Resolved]
  - Rotator cuff syndrome [Recovered/Resolved]
  - Back pain [Unknown]
  - Arthralgia [Unknown]
  - Depression [Not Recovered/Not Resolved]
  - Arthralgia [Not Recovered/Not Resolved]
  - Rheumatoid factor positive [Unknown]
  - Osteoarthritis [Unknown]
  - Synovial cyst [Unknown]

NARRATIVE: CASE EVENT DATE: 2004
